FAERS Safety Report 7700464-1 (Version None)
Quarter: 2011Q3

REPORT INFORMATION
  Report Type: 
  Country: None (occurrence: None)
  Receive Date: 20110822
  Receipt Date: 20110812
  Transmission Date: 20111222
  Serious: Yes (Hospitalization, Other)
  Sender: FDA-Public Use
  Company Number: LT-JNJFOC-20110803620

PATIENT
  Sex: Male

DRUGS (2)
  1. DOXORUBICIN HCL [Suspect]
     Indication: HEPATIC NEOPLASM MALIGNANT
     Route: 042
     Dates: start: 20061030, end: 20061201
  2. SORAFENIB [Suspect]
     Indication: HEPATIC NEOPLASM MALIGNANT
     Route: 065
     Dates: start: 20061003

REACTIONS (4)
  - HEPATIC ENCEPHALOPATHY [None]
  - DRUG INTOLERANCE [None]
  - AGRANULOCYTOSIS [None]
  - HEPATIC NEOPLASM MALIGNANT [None]
